FAERS Safety Report 5293377-9 (Version None)
Quarter: 2007Q2

REPORT INFORMATION
  Report Type: 
  Country: None (occurrence: None)
  Receive Date: 20070411
  Receipt Date: 20070403
  Transmission Date: 20071010
  Serious: Yes (Other)
  Sender: FDA-Public Use
  Company Number: US-JNJFOC-20070400685

PATIENT
  Sex: Male
  Weight: 78.47 kg

DRUGS (29)
  1. DOXORUBICIN HYDROCHLORIDE [Suspect]
     Indication: BURKITT'S LYMPHOMA
     Dosage: 40MG/M2
     Route: 042
  2. ACYCLOVIR [Concomitant]
     Route: 042
  3. DEXTROSE [Concomitant]
     Route: 042
  4. ALLOPURINOL [Concomitant]
     Route: 048
  5. CEFEPIME [Concomitant]
     Route: 042
  6. ANALAPRIL [Concomitant]
     Route: 048
  7. NEXIUM [Concomitant]
     Dosage: 7AM
     Route: 048
  8. DIFLUCAN [Concomitant]
     Route: 042
  9. LEUCOVORIN CALCIUM [Concomitant]
     Route: 042
  10. METHOTREXATE [Concomitant]
     Route: 037
  11. METOPROLOL SUCCINATE [Concomitant]
     Route: 048
  12. BACTRIM [Concomitant]
     Dosage: MON, WED, FRI
     Route: 048
  13. EUCERIN [Concomitant]
     Route: 061
  14. HEPARIN [Concomitant]
     Dosage: 100 UNITS/ML FOR LOCK FLUSH
     Route: 042
  15. ACTIVAN [Concomitant]
     Dosage: AS NECESSARY
     Route: 042
  16. REGLAN [Concomitant]
     Dosage: AS NECESSARY
     Route: 042
  17. NARCAN [Concomitant]
     Route: 042
  18. ZOFRAN [Concomitant]
     Dosage: AS NECESSARY
     Route: 042
  19. ZOFRAN [Concomitant]
     Dosage: AS NECESSARY
     Route: 048
  20. COMPAZINE [Concomitant]
     Dosage: AS NECESSARY
     Route: 048
  21. COMPAZINE [Concomitant]
     Dosage: AS NECESSARY
     Route: 042
  22. SALIVART [Concomitant]
     Route: 048
  23. SODIUM BICARBONATE [Concomitant]
     Route: 042
  24. OCEAN [Concomitant]
     Dosage: AS NECESSARY, 1 SPRAY IN EACH NOSTRIL
     Route: 045
  25. TRAZODONE HCL [Concomitant]
     Dosage: AS NECESSARY
     Route: 048
  26. AMBIEN [Concomitant]
     Dosage: AS NECESSARY
     Route: 048
  27. MAGNESIUM SULFATE [Concomitant]
     Route: 042
  28. POTASSIUM CHLORIDE [Concomitant]
     Route: 042
  29. POTASSIUM CHLORIDE [Concomitant]
     Route: 048

REACTIONS (1)
  - VENTRICULAR DYSFUNCTION [None]
